FAERS Safety Report 19829541 (Version 2)
Quarter: 2021Q3

REPORT INFORMATION
  Report Type: Report from Study
  Country: MX (occurrence: MX)
  Receive Date: 20210914
  Receipt Date: 20210928
  Transmission Date: 20211014
  Serious: Yes (Hospitalization)
  Sender: FDA-Public Use
  Company Number: NVSC2021MX207714

PATIENT
  Sex: Male
  Weight: 70 kg

DRUGS (2)
  1. CO?DIOVAN [Suspect]
     Active Substance: HYDROCHLOROTHIAZIDE\VALSARTAN
     Dosage: 1.5 DF, BID ((1 AND 1/2 DF) 1 TABLET IN MORNING AND 1/2 TABLET AT NIGHT)
     Route: 048
     Dates: start: 202101
  2. CO?DIOVAN [Suspect]
     Active Substance: HYDROCHLOROTHIAZIDE\VALSARTAN
     Indication: HYPERTENSION
     Dosage: 1 DF, QD (160/12.5 MG)
     Route: 048
     Dates: start: 2011, end: 202101

REACTIONS (8)
  - Memory impairment [Unknown]
  - Hypertension [Unknown]
  - Vein rupture [Recovered/Resolved]
  - Hypoacusis [Unknown]
  - Off label use [Unknown]
  - Disorientation [Unknown]
  - Haemorrhage [Recovered/Resolved]
  - Blood pressure decreased [Unknown]

NARRATIVE: CASE EVENT DATE: 2011
